FAERS Safety Report 4648599-4 (Version None)
Quarter: 2005Q2

REPORT INFORMATION
  Report Type: 
  Country: None (occurrence: None)
  Receive Date: 20050429
  Receipt Date: 20050421
  Transmission Date: 20051028
  Serious: Yes (Other)
  Sender: FDA-Public Use
  Company Number: 200513410US

PATIENT
  Sex: Female
  Weight: 72.3 kg

DRUGS (6)
  1. APIDRA [Suspect]
     Indication: DIABETES MELLITUS
     Dosage: DOSE: FIXED ARM
     Route: 058
     Dates: start: 20041102, end: 20050421
  2. OPTIPEN (INSULIN PUMP) [Suspect]
  3. LANTUS [Suspect]
     Indication: DIABETES MELLITUS
     Dosage: DOSE UNIT: UNITS
     Route: 058
  4. HUMALOG [Concomitant]
     Indication: DIABETES MELLITUS
     Route: 058
     Dates: end: 20041101
  5. SYNTHROID [Concomitant]
     Indication: HYPOTHYROIDISM
     Route: 048
  6. ZESTRIL [Concomitant]
     Indication: HYPERTENSION
     Route: 048

REACTIONS (1)
  - SYNCOPE [None]
